FAERS Safety Report 15433253 (Version 1)
Quarter: 2018Q3

REPORT INFORMATION
  Report Type: Spontaneous
  Country: SK (occurrence: SK)
  Receive Date: 20180927
  Receipt Date: 20180927
  Transmission Date: 20181010
  Serious: Yes (Hospitalization)
  Sender: FDA-Public Use
  Company Number: SK-TEVA-2018-SK-958543

PATIENT
  Age: 29 Year
  Sex: Male
  Weight: 89 kg

DRUGS (4)
  1. HERPESIN [Suspect]
     Active Substance: ACYCLOVIR
     Indication: FACIAL NERVE DISORDER
     Dosage: 2000 MILLIGRAM DAILY;
     Route: 048
     Dates: start: 20180820, end: 20180827
  2. OMEPRAZOLE. [Suspect]
     Active Substance: OMEPRAZOLE
     Indication: FACIAL NERVE DISORDER
     Dosage: 1?0?0
     Route: 048
     Dates: start: 20180820, end: 20180827
  3. IBALGIN [Suspect]
     Active Substance: IBUPROFEN
     Indication: PAIN
     Route: 048
  4. MILGAMMA [Suspect]
     Active Substance: VITAMIN B
     Indication: FACIAL NERVE DISORDER
     Route: 048

REACTIONS (2)
  - Toxic skin eruption [Recovered/Resolved]
  - Rash maculo-papular [Recovered/Resolved]

NARRATIVE: CASE EVENT DATE: 20180823
